FAERS Safety Report 7028405-3 (Version None)
Quarter: 2010Q4

REPORT INFORMATION
  Report Type: 
  Country: None (occurrence: None)
  Receive Date: 20101005
  Receipt Date: 20100925
  Transmission Date: 20110411
  Serious: Yes (Other)
  Sender: FDA-Public Use
  Company Number: AR-PFIZER INC-2010122255

PATIENT
  Age: 43 Year
  Sex: Female
  Weight: 60 kg

DRUGS (1)
  1. CHAMPIX [Suspect]
     Dosage: 2 MG, UNK, DAILY
     Route: 048
     Dates: start: 20100623

REACTIONS (5)
  - ABDOMINAL DISTENSION [None]
  - FEELING ABNORMAL [None]
  - FLATULENCE [None]
  - GASTROINTESTINAL DISORDER [None]
  - IRRITABLE BOWEL SYNDROME [None]
